FAERS Safety Report 11385537 (Version 1)
Quarter: 2015Q3

REPORT INFORMATION
  Report Type: Spontaneous
  Country: RO (occurrence: RO)
  Receive Date: 20150816
  Receipt Date: 20150816
  Transmission Date: 20151125
  Serious: Yes (Hospitalization, Other)
  Sender: FDA-Public Use
  Company Number: RO-AMGEN-ROUSP2015077569

PATIENT
  Age: 55 Year
  Sex: Male
  Weight: 98 kg

DRUGS (5)
  1. ENBREL [Suspect]
     Active Substance: ETANERCEPT
     Indication: PSORIASIS
     Dosage: 50 MG, TWICE WEEKLY
     Route: 058
     Dates: start: 20140131, end: 20150716
  2. HIDRAZIDA [Concomitant]
     Indication: TUBERCULOSIS
     Dosage: 300 MG, DAILY
     Route: 048
     Dates: start: 20150414, end: 20150716
  3. SILYBUM MARIANUM [Concomitant]
     Indication: CHRONIC HEPATITIS
     Dosage: 2 DF, DAILY
     Route: 048
  4. ESSENTIALE                         /00722001/ [Concomitant]
     Indication: CHRONIC HEPATITIS
     Dosage: UNK
  5. SILYMARIN [Concomitant]
     Active Substance: MILK THISTLE
     Indication: CHRONIC HEPATITIS
     Dosage: 2 DF, DAILY

REACTIONS (2)
  - Blindness unilateral [Unknown]
  - Optic neuritis [Not Recovered/Not Resolved]

NARRATIVE: CASE EVENT DATE: 2015
